FAERS Safety Report 15251225 (Version 3)
Quarter: 2018Q3

REPORT INFORMATION
  Report Type: Spontaneous
  Country: IT (occurrence: IT)
  Receive Date: 20180807
  Receipt Date: 20180906
  Transmission Date: 20181010
  Serious: Yes (Hospitalization)
  Sender: FDA-Public Use
  Company Number: IT-PFIZER INC-2018314622

PATIENT
  Age: 11 Year
  Sex: Female
  Weight: 72 kg

DRUGS (23)
  1. CIPROFLOXACIN. [Concomitant]
     Active Substance: CIPROFLOXACIN
     Dosage: 1000 MG, UNK
     Dates: start: 20171110, end: 20171115
  2. SANDIMMUN [Concomitant]
     Active Substance: CYCLOSPORINE
     Dosage: 180 MG, UNK
     Dates: start: 20171113
  3. ANTRA /00661201/ [Concomitant]
     Active Substance: OMEPRAZOLE
     Dosage: 40 MG, UNK
     Route: 042
  4. RANITIDINE HYDROCHLORIDE. [Concomitant]
     Active Substance: RANITIDINE HYDROCHLORIDE
     Dosage: 150 MG, UNK
     Route: 042
  5. NYSTATIN. [Concomitant]
     Active Substance: NYSTATIN
     Dosage: 15 ML, UNK
  6. THIOTEPA. [Suspect]
     Active Substance: THIOTEPA
     Indication: ALLOGENIC BONE MARROW TRANSPLANTATION THERAPY
     Dosage: 275 MG, DAILY
     Route: 042
     Dates: start: 20171111, end: 20171112
  7. ACICLOVIR [Concomitant]
     Active Substance: ACYCLOVIR
     Dosage: 1800 MG, UNK
     Route: 042
     Dates: start: 20171114, end: 20171211
  8. URBASON /00049601/ [Concomitant]
     Active Substance: METHYLPREDNISOLONE
     Dosage: 40 MG, UNK
     Route: 042
     Dates: start: 20171114
  9. METHOTREXATE SODIUM. [Suspect]
     Active Substance: METHOTREXATE SODIUM
     Dosage: UNK
  10. ANTITHYMOCYTE IMMUNOGLOBULIN (RABBIT) [Suspect]
     Active Substance: LAPINE T-LYMPHOCYTE IMMUNE GLOBULIN
     Dosage: 137.5 MG, DAILY
     Route: 042
     Dates: start: 20171113, end: 20171115
  11. ANTITHYMOCYTE IMMUNOGLOBULIN (RABBIT) [Suspect]
     Active Substance: LAPINE T-LYMPHOCYTE IMMUNE GLOBULIN
     Dosage: UNK
  12. THIOTEPA. [Suspect]
     Active Substance: THIOTEPA
     Dosage: UNK
  13. TRIMETON [Concomitant]
     Active Substance: CHLORPHENIRAMINE MALEATE
     Dosage: 2 DF, UNK
  14. ACICLOVIR [Concomitant]
     Active Substance: ACYCLOVIR
     Dosage: 2400 MG, UNK
     Route: 048
     Dates: start: 20171110, end: 20171113
  15. ENAPREN [Concomitant]
     Active Substance: ENALAPRIL MALEATE
     Dosage: 5 MG, UNK
  16. UROMITEXAN [Concomitant]
     Active Substance: MESNA
     Dosage: 1100 MG, UNK
     Route: 042
     Dates: start: 20171115
  17. ENDOXAN?BAXTER [Suspect]
     Active Substance: CYCLOPHOSPHAMIDE
     Dosage: UNK
  18. URSODEOXYCHOLIC ACID [Concomitant]
     Active Substance: URSODIOL
     Dosage: 600 MG, UNK
  19. FLUCONAZOLE. [Concomitant]
     Active Substance: FLUCONAZOLE
     Dosage: 350 MG, UNK
  20. METHOTREXATE SODIUM. [Suspect]
     Active Substance: METHOTREXATE SODIUM
     Indication: ALLOGENIC BONE MARROW TRANSPLANTATION THERAPY
     Dosage: 15 MG, CYCLIC
     Route: 042
     Dates: start: 20171119, end: 20171124
  21. ENDOXAN?BAXTER [Suspect]
     Active Substance: CYCLOPHOSPHAMIDE
     Indication: ALLOGENIC BONE MARROW TRANSPLANTATION THERAPY
     Dosage: 3300 MG, DAILY
     Route: 042
     Dates: start: 20171113, end: 20171114
  22. TACHIPIRINA [Concomitant]
     Active Substance: ACETAMINOPHEN
     Dosage: 1 G, UNK
     Route: 048
  23. LASIX [Concomitant]
     Active Substance: FUROSEMIDE
     Dosage: 108 MG, UNK
     Route: 042
     Dates: start: 20171110

REACTIONS (3)
  - Pyrexia [Recovering/Resolving]
  - Cytomegalovirus infection [Recovering/Resolving]
  - Pulmonary mass [Recovering/Resolving]

NARRATIVE: CASE EVENT DATE: 20171204
